FAERS Safety Report 11912839 (Version 1)
Quarter: 2016Q1

REPORT INFORMATION
  Report Type: Spontaneous
  Country: US (occurrence: None)
  Receive Date: 20160112
  Receipt Date: 20160112
  Transmission Date: 20160526
  Serious: Yes (Other)
  Sender: FDA-Public Use
  Company Number: None

PATIENT
  Age: 67 Year
  Sex: Female
  Weight: 104.33 kg

DRUGS (12)
  1. NORVASC [Concomitant]
     Active Substance: AMLODIPINE BESYLATE
  2. VITAMIN D3 [Concomitant]
     Active Substance: CHOLECALCIFEROL
  3. VITAMIN B COMPLEX [Concomitant]
     Active Substance: CYANOCOBALAMIN\DEXPANTHENOL\NIACINAMIDE\PYRIDOXINE HYDROCHLORIDE\RIBOFLAVIN 5^-PHOSPHATE SODIUM\THIAMINE HYDROCHLORIDE\VITAMIN B COMPLEX
  4. TERAZOSIN [Concomitant]
     Active Substance: TERAZOSIN\TERAZOSIN HYDROCHLORIDE
  5. ANORO ELLIPTA [Suspect]
     Active Substance: UMECLIDINIUM BROMIDE\VILANTEROL TRIFENATATE
     Indication: CHRONIC OBSTRUCTIVE PULMONARY DISEASE
     Dosage: RESPIRATORY
     Route: 055
     Dates: start: 20150601, end: 20150924
  6. LEVOTHROID [Concomitant]
     Active Substance: LEVOTHYROXINE SODIUM
  7. HYZAAR [Concomitant]
     Active Substance: HYDROCHLOROTHIAZIDE\LOSARTAN POTASSIUM
  8. VITAMIN C [Concomitant]
     Active Substance: ASCORBIC ACID
  9. OMEPRAZOLE. [Concomitant]
     Active Substance: OMEPRAZOLE
  10. ASPIRIN. [Concomitant]
     Active Substance: ASPIRIN
  11. VITAMIN E [Concomitant]
     Active Substance: .ALPHA.-TOCOPHEROL
  12. DALIRESP [Concomitant]
     Active Substance: ROFLUMILAST

REACTIONS (1)
  - Laboratory test abnormal [None]

NARRATIVE: CASE EVENT DATE: 20150828
